FAERS Safety Report 7531297-7 (Version None)
Quarter: 2011Q2

REPORT INFORMATION
  Report Type: 
  Country: None (occurrence: None)
  Receive Date: 20110608
  Receipt Date: 20110603
  Transmission Date: 20111010
  Serious: Yes (Hospitalization)
  Sender: FDA-Public Use
  Company Number: DE-SANOFI-AVENTIS-2010SA009030

PATIENT
  Age: 59 Year
  Sex: Male
  Weight: 79 kg

DRUGS (18)
  1. AFLIBERCEPT [Suspect]
     Route: 042
     Dates: start: 20090902, end: 20090902
  2. OXALIPLATIN [Suspect]
     Route: 042
     Dates: start: 20090902, end: 20090902
  3. ONDANSETRON [Concomitant]
     Dates: start: 20090916
  4. RECTOGESIC [Concomitant]
     Dates: start: 20100120, end: 20100210
  5. OXALIPLATIN [Suspect]
     Route: 042
     Dates: start: 20100203, end: 20100203
  6. LEUCOVORIN CALCIUM [Suspect]
     Route: 042
     Dates: start: 20090902, end: 20090902
  7. DEXAMETHASONE [Concomitant]
     Dates: start: 20091014
  8. ENOXAPARIN SODIUM [Concomitant]
     Dates: start: 20091209
  9. FLUOROURACIL [Suspect]
     Route: 042
     Dates: start: 20090902, end: 20090902
  10. FAKTU [Concomitant]
     Dates: start: 20091228, end: 20100210
  11. AFLIBERCEPT [Suspect]
     Route: 042
     Dates: start: 20100203, end: 20100203
  12. BACLOFEN [Concomitant]
     Dates: start: 20091021
  13. STOMATOLOGICALS, MOUTH PREPARATIONS [Concomitant]
     Dates: start: 20091014
  14. LEUCOVORIN CALCIUM [Suspect]
     Route: 042
     Dates: start: 20100203, end: 20100203
  15. ZOFRAN [Concomitant]
     Dates: start: 20090902
  16. NOVALGIN [Concomitant]
     Dates: start: 20090930
  17. PANTOPRAZOLE [Concomitant]
     Dates: start: 20091021
  18. FLUOROURACIL [Suspect]
     Route: 042
     Dates: start: 20100203, end: 20100203

REACTIONS (1)
  - ANAL FISTULA [None]
